FAERS Safety Report 15255854 (Version 1)
Quarter: 2018Q3

REPORT INFORMATION
  Report Type: Spontaneous
  Country: US (occurrence: US)
  Receive Date: 20180718
  Receipt Date: 20180718
  Transmission Date: 20181010
  Serious: Yes (Life-Threatening, Hospitalization)
  Sender: FDA-Public Use
  Company Number: None

PATIENT
  Age: 58 Year
  Sex: Male
  Weight: 102.6 kg

DRUGS (6)
  1. DIM [Concomitant]
  2. LEVAQUIN [Suspect]
     Active Substance: LEVOFLOXACIN
     Indication: BACTERIAL INFECTION
     Dosage: ?          QUANTITY:1 TABLET(S);?
     Route: 048
     Dates: start: 20180416, end: 20180425
  3. TYLENOL PM [Concomitant]
     Active Substance: ACETAMINOPHEN\DIPHENHYDRAMINE
  4. DIOVAN 320 [Concomitant]
  5. ATORVASTATIN 10 [Concomitant]
  6. SUPER BETA PROSTRATE VITAMIN D [Concomitant]

REACTIONS (1)
  - Aortic dissection [None]

NARRATIVE: CASE EVENT DATE: 20180707
